FAERS Safety Report 17662053 (Version 1)
Quarter: 2020Q2

REPORT INFORMATION
  Report Type: Spontaneous
  Country: FR (occurrence: FR)
  Receive Date: 20200413
  Receipt Date: 20200413
  Transmission Date: 20200713
  Serious: Yes (Life-Threatening)
  Sender: FDA-Public Use
  Company Number: FR-TEVA-2020-FR-1223033

PATIENT
  Age: 54 Year
  Sex: Male
  Weight: 94 kg

DRUGS (8)
  1. SUFENTANIL [Concomitant]
     Active Substance: SUFENTANIL
  2. AZITHROMYCINE ANHYDRE [Suspect]
     Active Substance: AZITHROMYCIN ANHYDROUS
     Indication: CORONAVIRUS INFECTION
     Dosage: UNKNOWN DOSAGE
     Route: 048
     Dates: start: 20200325
  3. AUGMENTIN [Concomitant]
     Active Substance: AMOXICILLIN\CLAVULANATE POTASSIUM
     Indication: CORONAVIRUS INFECTION
     Dosage: UNKNOWN DOSAGE
     Route: 048
     Dates: start: 20200325
  4. HYPNOVEL [Concomitant]
     Active Substance: MIDAZOLAM
  5. TRACRIUM [Concomitant]
     Active Substance: ATRACURIUM BESYLATE
  6. PLAQUENIL [Suspect]
     Active Substance: HYDROXYCHLOROQUINE SULFATE
     Indication: CORONAVIRUS INFECTION
     Dosage: 800 MG
     Route: 048
     Dates: start: 20200325, end: 20200327
  7. ESMERON [Concomitant]
     Active Substance: ROCURONIUM BROMIDE
  8. ETOMIDATE. [Concomitant]
     Active Substance: ETOMIDATE

REACTIONS (1)
  - Electrocardiogram QT prolonged [Recovered/Resolved]

NARRATIVE: CASE EVENT DATE: 20200327
